FAERS Safety Report 17248214 (Version 2)
Quarter: 2020Q1

REPORT INFORMATION
  Report Type: Spontaneous
  Country: US (occurrence: US)
  Receive Date: 20200108
  Receipt Date: 20200109
  Transmission Date: 20200409
  Serious: Yes (Other)
  Sender: FDA-Public Use
  Company Number: US-JNJFOC-20200108352

PATIENT
  Age: 61 Year
  Sex: Male
  Weight: 97.61 kg

DRUGS (2)
  1. SIMPONI [Suspect]
     Active Substance: GOLIMUMAB
     Indication: RHEUMATOID ARTHRITIS
     Dosage: 6 TO 8 YEARS AGO.
     Route: 058
  2. SIMPONI [Suspect]
     Active Substance: GOLIMUMAB
     Dosage: 6 TO 8 YEARS AGO.
     Route: 058
     Dates: start: 201905

REACTIONS (6)
  - Rheumatoid arthritis [Unknown]
  - Device defective [Unknown]
  - Spinal laminectomy [Recovered/Resolved]
  - Off label use [Unknown]
  - Product use issue [Unknown]
  - Product dose omission [Not Recovered/Not Resolved]

NARRATIVE: CASE EVENT DATE: 20191206
